FAERS Safety Report 17855665 (Version 1)
Quarter: 2020Q2

REPORT INFORMATION
  Report Type: Spontaneous
  Country: CZ (occurrence: CZ)
  Receive Date: 20200603
  Receipt Date: 20200603
  Transmission Date: 20200714
  Serious: Yes (Other)
  Sender: FDA-Public Use
  Company Number: CZ-MYLANLABS-2020M1053415

PATIENT
  Age: 56 Year
  Sex: Male

DRUGS (4)
  1. PREDNISONE. [Suspect]
     Active Substance: PREDNISONE
     Dosage: 10 MG
     Route: 065
     Dates: start: 201206, end: 201304
  2. DOCETAXEL. [Suspect]
     Active Substance: DOCETAXEL
     Indication: HORMONE-REFRACTORY PROSTATE CANCER
     Dosage: 75 MG/M2, QCY
     Route: 065
     Dates: start: 201206, end: 201304
  3. CABAZITAXEL [Suspect]
     Active Substance: CABAZITAXEL
     Indication: HORMONE-REFRACTORY PROSTATE CANCER
     Dosage: 25 MG/M2, QCY
     Route: 065
     Dates: start: 201308, end: 201410
  4. PREDNISONE. [Suspect]
     Active Substance: PREDNISONE
     Indication: PRODUCT USED FOR UNKNOWN INDICATION
     Dosage: UNK
     Route: 065
     Dates: start: 201308, end: 201410

REACTIONS (3)
  - Leukopenia [Unknown]
  - Neuropathy peripheral [Unknown]
  - Disease progression [Unknown]

NARRATIVE: CASE EVENT DATE: 201311
